FAERS Safety Report 9735792 (Version 1)
Quarter: 2013Q4

REPORT INFORMATION
  Report Type: Spontaneous
  Country: US (occurrence: US)
  Receive Date: 20131206
  Receipt Date: 20131206
  Transmission Date: 20140711
  Serious: No
  Sender: FDA-Public Use
  Company Number: US-GILEAD-2009-0023119

PATIENT
  Age: 58 Year
  Sex: Female

DRUGS (6)
  1. LETAIRIS [Suspect]
     Indication: PULMONARY ARTERIAL HYPERTENSION
     Route: 048
     Dates: start: 20090320
  2. SYNTHROID [Concomitant]
  3. ZOCOR [Concomitant]
  4. NEXIUM [Concomitant]
  5. FLAGYL [Concomitant]
     Dates: start: 20090708, end: 20090721
  6. CIPRO [Concomitant]
     Dates: start: 20090708, end: 20090721

REACTIONS (2)
  - Diverticulitis [Unknown]
  - Sinus congestion [Unknown]
